FAERS Safety Report 7815561-X (Version None)
Quarter: 2011Q4

REPORT INFORMATION
  Report Type: 
  Country: None (occurrence: None)
  Receive Date: 20111014
  Receipt Date: 20111006
  Transmission Date: 20120403
  Serious: Yes (Other)
  Sender: FDA-Public Use
  Company Number: GB-ABBOTT-11P-167-0861545-00

PATIENT
  Age: 30 Year
  Sex: Male

DRUGS (1)
  1. HUMIRA [Suspect]
     Indication: PRODUCT USED FOR UNKNOWN INDICATION
     Dates: start: 20110830, end: 20110901

REACTIONS (5)
  - SUDDEN ONSET OF SLEEP [None]
  - DIZZINESS [None]
  - CHROMATURIA [None]
  - HEADACHE [None]
  - SYNCOPE [None]
